FAERS Safety Report 16323220 (Version 2)
Quarter: 2019Q2

REPORT INFORMATION
  Report Type: Spontaneous
  Country: US (occurrence: US)
  Receive Date: 20190517
  Receipt Date: 20190614
  Transmission Date: 20190711
  Serious: No
  Sender: FDA-Public Use
  Company Number: US-JNJFOC-20190434039

PATIENT
  Age: 60 Year
  Sex: Female
  Weight: 56.25 kg

DRUGS (12)
  1. ZYRTEC [Suspect]
     Active Substance: CETIRIZINE HYDROCHLORIDE
     Indication: APPLICATION SITE RASH
     Dosage: DURING THE DAY FOR ABOUT 3 DAYS
     Route: 065
     Dates: start: 201904
  2. BENADRYL [Suspect]
     Active Substance: DIPHENHYDRAMINE HYDROCHLORIDE
     Indication: APPLICATION SITE PAIN
     Dosage: AT NIGHT FOR ABOUT 3 DAYS
     Route: 048
     Dates: start: 201904
  3. HYDROCORTISONE. [Suspect]
     Active Substance: HYDROCORTISONE
     Indication: APPLICATION SITE PAIN
     Dosage: FOR ABOUT 3 DAYS
     Route: 061
     Dates: start: 201904
  4. ZYRTEC [Suspect]
     Active Substance: CETIRIZINE HYDROCHLORIDE
     Indication: APPLICATION SITE PAIN
     Dosage: DURING THE DAY FOR ABOUT 3 DAYS
     Route: 065
     Dates: start: 201904
  5. HYDROCORTISONE. [Suspect]
     Active Substance: HYDROCORTISONE
     Indication: APPLICATION SITE RASH
     Dosage: FOR ABOUT 3 DAYS
     Route: 061
     Dates: start: 201904
  6. ZYRTEC [Suspect]
     Active Substance: CETIRIZINE HYDROCHLORIDE
     Indication: HYPERSENSITIVITY
     Dosage: DURING THE DAY FOR ABOUT 3 DAYS
     Route: 065
     Dates: start: 201904
  7. HYDROCORTISONE. [Suspect]
     Active Substance: HYDROCORTISONE
     Indication: APPLICATION SITE RASH
     Dosage: FOR ABOUT 3 DAYS
     Route: 061
     Dates: start: 201904
  8. NEUTROGENA ULTRA SHEER SUNSCREEN LOTION SPF55 [Concomitant]
     Indication: PROPHYLAXIS AGAINST SOLAR RADIATION
     Route: 061
  9. LEVOTHYROXINE. [Concomitant]
     Active Substance: LEVOTHYROXINE
     Indication: THYROID DISORDER
     Route: 065
  10. BENADRYL [Suspect]
     Active Substance: DIPHENHYDRAMINE HYDROCHLORIDE
     Indication: APPLICATION SITE RASH
     Dosage: AT NIGHT FOR ABOUT 3 DAYS
     Route: 048
     Dates: start: 201904
  11. BENADRYL [Suspect]
     Active Substance: DIPHENHYDRAMINE HYDROCHLORIDE
     Indication: HYPERSENSITIVITY
     Dosage: AT NIGHT FOR ABOUT 3 DAYS
     Route: 048
     Dates: start: 201904
  12. HYDROCORTISONE. [Suspect]
     Active Substance: HYDROCORTISONE
     Indication: HYPERSENSITIVITY
     Dosage: FOR ABOUT 3 DAYS
     Route: 061
     Dates: start: 201904

REACTIONS (3)
  - Therapeutic response unexpected [Unknown]
  - Product use in unapproved indication [Unknown]
  - Off label use [Unknown]

NARRATIVE: CASE EVENT DATE: 201904
